FAERS Safety Report 19954423 (Version 3)
Quarter: 2021Q4

REPORT INFORMATION
  Report Type: Report from Study
  Country: CA (occurrence: CA)
  Receive Date: 20211014
  Receipt Date: 20211112
  Transmission Date: 20220303
  Serious: Yes (Other)
  Sender: FDA-Public Use
  Company Number: CA-NOVARTISPH-NVSC2021CA210224

PATIENT
  Age: 41 Year
  Sex: Female

DRUGS (1)
  1. KESIMPTA [Suspect]
     Active Substance: OFATUMUMAB
     Indication: Relapsing-remitting multiple sclerosis
     Dosage: UNK
     Route: 058
     Dates: start: 20210907

REACTIONS (14)
  - Lower respiratory tract infection [Unknown]
  - Blindness [Unknown]
  - Oropharyngeal pain [Unknown]
  - Illness [Unknown]
  - Migraine [Unknown]
  - Decreased appetite [Unknown]
  - Nasal congestion [Unknown]
  - Product dose omission issue [Unknown]
  - Cough [Unknown]
  - Chest discomfort [Unknown]
  - Diarrhoea [Unknown]
  - Pyrexia [Unknown]
  - Rhinorrhoea [Unknown]
  - Injection site pain [Unknown]

NARRATIVE: CASE EVENT DATE: 20210914
